FAERS Safety Report 14480658 (Version 1)
Quarter: 2018Q1

REPORT INFORMATION
  Report Type: Spontaneous
  Country: IE (occurrence: IE)
  Receive Date: 20180202
  Receipt Date: 20180202
  Transmission Date: 20180509
  Serious: Yes (Hospitalization)
  Sender: FDA-Public Use
  Company Number: IE-PFIZER INC-2018039994

PATIENT
  Age: 66 Year
  Sex: Female

DRUGS (2)
  1. FULVESTRANT. [Suspect]
     Active Substance: FULVESTRANT
     Dosage: UNK
     Dates: start: 201702
  2. IBRANCE [Suspect]
     Active Substance: PALBOCICLIB
     Dosage: UNK
     Dates: start: 201702

REACTIONS (5)
  - Blood creatinine abnormal [Unknown]
  - Haemoglobin abnormal [Unknown]
  - Platelet count abnormal [Recovered/Resolved]
  - Dehydration [Unknown]
  - Tumour marker increased [Recovered/Resolved]

NARRATIVE: CASE EVENT DATE: 201704
